FAERS Safety Report 23472371 (Version 1)
Quarter: 2024Q1

REPORT INFORMATION
  Report Type: Spontaneous
  Country: US (occurrence: US)
  Receive Date: 20240202
  Receipt Date: 20240202
  Transmission Date: 20240410
  Serious: Yes (Hospitalization)
  Sender: FDA-Public Use
  Company Number: US-TEVA-VS-3150960

PATIENT
  Age: 55 Year
  Sex: Male

DRUGS (7)
  1. OCTREOTIDE [Suspect]
     Active Substance: OCTREOTIDE\OCTREOTIDE ACETATE
     Indication: Pancreatic neuroendocrine tumour
     Route: 065
  2. EVEROLIMUS [Suspect]
     Active Substance: EVEROLIMUS
     Indication: Neuroglycopenia
     Route: 065
  3. DEXTROSE [Suspect]
     Active Substance: DEXTROSE\DEXTROSE MONOHYDRATE
     Indication: Neuroglycopenia
     Dosage: 58% OF SENSOR GLUCOSE WAS BELOW 70 MG/DL AND 19% BELOW 54 MG/DL OVER 24 HOURS
     Route: 040
  4. GLUCAGON [Suspect]
     Active Substance: GLUCAGON\GLUCAGON HYDROCHLORIDE\WATER
     Indication: Neuroglycopenia
     Route: 065
  5. DEXAMETHASONE [Suspect]
     Active Substance: DEXAMETHASONE
     Indication: Neuroglycopenia
     Route: 065
  6. DIAZOXIDE [Suspect]
     Active Substance: DIAZOXIDE
     Indication: Neuroglycopenia
     Dosage: HIGH DOSE
     Route: 065
  7. PASIREOTIDE [Suspect]
     Active Substance: PASIREOTIDE
     Indication: Neuroglycopenia
     Route: 065

REACTIONS (1)
  - Drug ineffective [Unknown]
